FAERS Safety Report 9432634 (Version 1)
Quarter: 2013Q3

REPORT INFORMATION
  Report Type: Spontaneous
  Country: JP (occurrence: JP)
  Receive Date: 20130731
  Receipt Date: 20130731
  Transmission Date: 20140515
  Serious: Yes (Hospitalization, Other)
  Sender: FDA-Public Use
  Company Number: PHHY2013JP079820

PATIENT
  Sex: Male

DRUGS (2)
  1. ZOMETA [Suspect]
     Indication: METASTASES TO BONE
     Dosage: UNK
     Route: 041
  2. ZOMETA [Suspect]
     Dosage: UNK
     Route: 041
     Dates: start: 20130718

REACTIONS (4)
  - Feeling abnormal [Unknown]
  - Decreased appetite [Unknown]
  - Headache [Unknown]
  - Blood calcium decreased [Unknown]
